APPROVED DRUG PRODUCT: CORZIDE
Active Ingredient: BENDROFLUMETHIAZIDE; NADOLOL
Strength: 5MG;80MG **Federal Register determination that product was not discontinued or withdrawn for safety or effectiveness reasons**
Dosage Form/Route: TABLET;ORAL
Application: N018647 | Product #002
Applicant: KING PHARMACEUTICALS LLC
Approved: May 25, 1983 | RLD: Yes | RS: No | Type: DISCN